FAERS Safety Report 25485651 (Version 2)
Quarter: 2025Q3

REPORT INFORMATION
  Report Type: Spontaneous
  Country: EU (occurrence: EU)
  Receive Date: 20250626
  Receipt Date: 20250730
  Transmission Date: 20251020
  Serious: No
  Sender: ASTELLAS
  Company Number: EU-ASTELLAS-2025-AER-033730

PATIENT
  Age: 69 Year
  Sex: Female

DRUGS (5)
  1. VEOZAH [Suspect]
     Active Substance: FEZOLINETANT
     Indication: Product used for unknown indication
     Route: 050
     Dates: start: 202504
  2. ELIQUIS [Concomitant]
     Active Substance: APIXABAN
     Indication: Product used for unknown indication
     Route: 048
  3. OMEPRAZOLE [Concomitant]
     Active Substance: OMEPRAZOLE
     Indication: Product used for unknown indication
     Route: 048
  4. ATORVASTATIN [Concomitant]
     Active Substance: ATORVASTATIN
     Indication: Product used for unknown indication
     Route: 048
  5. Candesartan hydrochlorotiazid [Concomitant]
     Indication: Product used for unknown indication
     Route: 048

REACTIONS (4)
  - Blood alkaline phosphatase increased [Unknown]
  - Aspartate aminotransferase increased [Not Recovered/Not Resolved]
  - Alanine aminotransferase increased [Not Recovered/Not Resolved]
  - Product prescribing issue [Unknown]

NARRATIVE: CASE EVENT DATE: 20250401
